FAERS Safety Report 6471482-9 (Version None)
Quarter: 2009Q4

REPORT INFORMATION
  Report Type: 
  Country: None (occurrence: None)
  Receive Date: 20091203
  Receipt Date: 20080313
  Transmission Date: 20100525
  Serious: Yes (Hospitalization, Other)
  Sender: FDA-Public Use
  Company Number: US-ELI_LILLY_AND_COMPANY-US200802006533

PATIENT
  Sex: Female

DRUGS (4)
  1. PROZAC [Suspect]
     Indication: DEPRESSION
     Dosage: UNK, UNK
     Dates: start: 19970101, end: 20070201
  2. PROZAC [Suspect]
     Dosage: 30 MG, UNK
     Dates: start: 20070201, end: 20080225
  3. INSULIN [Concomitant]
  4. THYROID THERAPY [Concomitant]

REACTIONS (3)
  - DIABETIC KETOACIDOSIS [None]
  - STAPHYLOCOCCAL INFECTION [None]
  - TYPE 1 DIABETES MELLITUS [None]
